FAERS Safety Report 10153387 (Version 1)
Quarter: 2014Q2

REPORT INFORMATION
  Report Type: Spontaneous
  Country: US (occurrence: US)
  Receive Date: 20140505
  Receipt Date: 20140505
  Transmission Date: 20141212
  Serious: No
  Sender: FDA-Public Use
  Company Number: US-ASTRAZENECA-2013SE85152

PATIENT
  Age: 70 Year
  Sex: Male
  Weight: 81.6 kg

DRUGS (2)
  1. OMEPRAZOLE [Suspect]
     Indication: BARRETT^S OESOPHAGUS
     Route: 048
     Dates: start: 2009
  2. OMEPRAZOLE [Suspect]
     Indication: GASTROOESOPHAGEAL REFLUX DISEASE
     Route: 048
     Dates: start: 2009

REACTIONS (2)
  - Blood chromogranin A increased [Unknown]
  - Weight decreased [Unknown]
